FAERS Safety Report 9103626 (Version 1)
Quarter: 2013Q1

REPORT INFORMATION
  Report Type: Report from Study
  Country: MX (occurrence: MX)
  Receive Date: 20130219
  Receipt Date: 20130219
  Transmission Date: 20140127
  Serious: Yes (Other)
  Sender: FDA-Public Use
  Company Number: MX-SANOFI-AVENTIS-2013SA013641

PATIENT
  Age: 60 Year
  Sex: Female
  Weight: 60 kg

DRUGS (8)
  1. ARAVA [Suspect]
     Indication: RHEUMATOID ARTHRITIS
     Route: 048
     Dates: start: 2006, end: 2012
  2. ARAVA [Suspect]
     Indication: RHEUMATOID ARTHRITIS
     Route: 048
     Dates: start: 2012
  3. PLAQUENIL [Suspect]
     Indication: RHEUMATOID ARTHRITIS
     Route: 048
     Dates: start: 2006, end: 2012
  4. PLAQUENIL [Suspect]
     Indication: RHEUMATOID ARTHRITIS
     Dosage: DOSE: 1 TABLET IN THE MORNING AND 1/2 TABLET AT NIGHT (1 1/2 TABLET)
     Route: 048
     Dates: start: 2012
  5. METHOTREXATE [Concomitant]
     Indication: RHEUMATOID ARTHRITIS
     Route: 048
     Dates: start: 2006, end: 2010
  6. METHOTREXATE [Concomitant]
     Indication: RHEUMATOID ARTHRITIS
     Route: 030
     Dates: start: 2010
  7. FOLIC ACID [Concomitant]
     Route: 048
     Dates: start: 2006
  8. METFORMIN [Concomitant]
     Route: 048
     Dates: start: 201106

REACTIONS (9)
  - Gastric ulcer [Recovered/Resolved]
  - Blood cholesterol increased [Recovered/Resolved]
  - Blood triglycerides increased [Recovered/Resolved]
  - Weight decreased [Recovered/Resolved]
  - Haemoglobin decreased [Recovered/Resolved]
  - Dizziness [Recovered/Resolved]
  - Pallor [Recovered/Resolved]
  - Incorrect dose administered [Unknown]
  - Incorrect dose administered [Unknown]
